FAERS Safety Report 8783324 (Version 2)
Quarter: 2012Q4

REPORT INFORMATION
  Report Type: 
  Country: MX (occurrence: MX)
  Receive Date: 20120913
  Receipt Date: 20121002
  Transmission Date: 20130627
  Serious: Yes (Hospitalization)
  Sender: FDA-Public Use
  Company Number: MX-JNJFOC-20120902703

PATIENT
  Age: 8 Month
  Sex: Female

DRUGS (1)
  1. DURAPTA [Suspect]
     Indication: DIVERTICULITIS
     Route: 041

REACTIONS (3)
  - Lung disorder [Not Recovered/Not Resolved]
  - CNS ventriculitis [Recovered/Resolved]
  - Off label use [Recovered/Resolved]
